FAERS Safety Report 8505256-1 (Version None)
Quarter: 2012Q3

REPORT INFORMATION
  Report Type: 
  Country: None (occurrence: None)
  Receive Date: 20120712
  Receipt Date: 20120709
  Transmission Date: 20120928
  Serious: Yes (Hospitalization, Other)
  Sender: FDA-Public Use
  Company Number: US-PFIZER INC-2012164445

PATIENT
  Sex: Male
  Weight: 136 kg

DRUGS (9)
  1. PROTONIX [Suspect]
     Indication: LIVER DISORDER
  2. LEVEMIR [Concomitant]
     Indication: DIABETES MELLITUS
     Dosage: 25 IU, 2X/DAY
  3. LACTULOSE [Concomitant]
     Indication: AMMONIA ABNORMAL
     Dosage: UNK, 3X/DAY
  4. POTASSIUM CHLORIDE [Concomitant]
     Indication: ELECTROLYTE SUBSTITUTION THERAPY
     Dosage: UNK, 2X/DAY
  5. LASIX [Concomitant]
     Indication: FLUID RETENTION
     Dosage: 40 MG, 2X/DAY
  6. PROPRANOLOL [Concomitant]
     Indication: HYPERTENSION
     Dosage: 10 MG, 3X/DAY
  7. PROTONIX [Suspect]
     Indication: GASTRIC DISORDER
     Dosage: 40 MG, DAILY
     Route: 048
     Dates: start: 20120301
  8. NOVOLOG [Concomitant]
     Indication: DIABETES MELLITUS
     Dosage: 10 IU, 2X/DAY
  9. LEVOTHYROXINE [Concomitant]
     Indication: THYROID DISORDER
     Dosage: 150 UG, DAILY

REACTIONS (1)
  - HEPATIC CIRRHOSIS [None]
